FAERS Safety Report 7922458 (Version 3)
Quarter: 2013Q4

REPORT INFORMATION
  Report Type: Spontaneous
  Country: US (occurrence: US)
  Receive Date: 20110429
  Receipt Date: 20131024
  Transmission Date: 20140711
  Serious: Yes (Other)
  Sender: FDA-Public Use
  Company Number: US-ASTRAZENECA-2011SE02287

PATIENT
  Age: 71 Year
  Sex: Female
  Weight: 72.1 kg

DRUGS (3)
  1. NEXIUM [Suspect]
     Indication: GASTROOESOPHAGEAL REFLUX DISEASE
     Route: 048
     Dates: start: 2008
  2. ENZYMES [Concomitant]
     Indication: GASTROOESOPHAGEAL REFLUX DISEASE
     Dosage: 1 OR 2,  20 MINUTES BEFORE EATING
  3. OXYGEN [Concomitant]
     Indication: OXYGEN SATURATION DECREASED
     Route: 045

REACTIONS (10)
  - Oesophageal haemorrhage [Unknown]
  - Hernia [Unknown]
  - Dyspepsia [Unknown]
  - Road traffic accident [Unknown]
  - Movement disorder [Unknown]
  - Pain [Unknown]
  - Sleep apnoea syndrome [Unknown]
  - Oesophagitis [Unknown]
  - Arthralgia [Unknown]
  - Intentional drug misuse [Unknown]
